FAERS Safety Report 13860680 (Version 1)
Quarter: 2017Q3

REPORT INFORMATION
  Report Type: Spontaneous
  Country: US (occurrence: US)
  Receive Date: 20170811
  Receipt Date: 20170811
  Transmission Date: 20171127
  Serious: No
  Sender: FDA-Public Use
  Company Number: None

PATIENT
  Age: 76 Year
  Sex: Female

DRUGS (1)
  1. HUMALOG [Suspect]
     Active Substance: INSULIN LISPRO
     Dosage: INJECT AS PER SLIDING SCALE 4 TO 10 UNITS THREE TIMES A DAY AS NEEDED TID SUBCUTANEOUS
     Route: 058

REACTIONS (1)
  - Product physical consistency issue [None]

NARRATIVE: CASE EVENT DATE: 20170803
